FAERS Safety Report 5757720-6 (Version None)
Quarter: 2008Q2

REPORT INFORMATION
  Report Type: 
  Country: None (occurrence: None)
  Receive Date: 20080529
  Receipt Date: 20080519
  Transmission Date: 20081010
  Serious: Yes (Death, Other)
  Sender: FDA-Public Use
  Company Number: 220001L08FRA

PATIENT
  Sex: Male

DRUGS (1)
  1. SOMATROPIN (SOMATROPIN) [Suspect]
     Indication: GROWTH HORMONE DEFICIENCY
     Dosage: 0 . 3 MG/KG, 6 IN 7  DAYS

REACTIONS (10)
  - CACHEXIA [None]
  - DIABETES MELLITUS [None]
  - DIALYSIS [None]
  - ENCEPHALOPATHY [None]
  - EYELID PTOSIS [None]
  - GROWTH HORMONE DEFICIENCY [None]
  - MENTAL RETARDATION [None]
  - NEPHROTIC SYNDROME [None]
  - RENAL FAILURE [None]
  - RETINOGRAM ABNORMAL [None]
